FAERS Safety Report 6399774-2 (Version None)
Quarter: 2009Q4

REPORT INFORMATION
  Report Type: 
  Country: None (occurrence: None)
  Receive Date: 20091014
  Receipt Date: 20091002
  Transmission Date: 20100525
  Serious: Yes (Death)
  Sender: FDA-Public Use
  Company Number: US-ELI_LILLY_AND_COMPANY-US200910000603

PATIENT
  Age: 38 Year
  Sex: Female

DRUGS (2)
  1. ZYPREXA [Suspect]
     Indication: PSYCHOTIC DISORDER
     Dosage: 10 MG, DAILY (1/D)
     Dates: start: 20080101, end: 20090914
  2. SYMBYAX [Suspect]
     Indication: PSYCHOTIC DISORDER
     Dosage: 1 D/F, DAILY (1/D)
     Dates: start: 20090914

REACTIONS (2)
  - CARDIAC ARREST [None]
  - DEPRESSION [None]
